FAERS Safety Report 6115411-6 (Version None)
Quarter: 2009Q1

REPORT INFORMATION
  Report Type: 
  Country: None (occurrence: None)
  Receive Date: 20090313
  Receipt Date: 20090312
  Transmission Date: 20090719
  Serious: Yes (Hospitalization)
  Sender: FDA-Public Use
  Company Number: US-BRISTOL-MYERS SQUIBB COMPANY-14541270

PATIENT
  Sex: Female

DRUGS (5)
  1. IXEMPRA KIT [Suspect]
     Indication: INFLAMMATORY CARCINOMA OF THE BREAST
  2. CYTOXAN [Suspect]
     Indication: INFLAMMATORY CARCINOMA OF THE BREAST
  3. ADRIAMYCIN PFS [Suspect]
     Indication: INFLAMMATORY CARCINOMA OF THE BREAST
  4. TAXOTERE [Suspect]
     Indication: INFLAMMATORY CARCINOMA OF THE BREAST
  5. XELODA [Suspect]
     Indication: INFLAMMATORY CARCINOMA OF THE BREAST

REACTIONS (2)
  - HYPOTENSION [None]
  - SEPSIS [None]
